FAERS Safety Report 13996218 (Version 1)
Quarter: 2017Q3

REPORT INFORMATION
  Report Type: Spontaneous
  Country: US (occurrence: US)
  Receive Date: 20170921
  Receipt Date: 20170921
  Transmission Date: 20171128
  Serious: Yes (Other)
  Sender: FDA-Public Use
  Company Number: US-NOVOPROD-563824

PATIENT
  Age: 75 Year
  Sex: Female

DRUGS (1)
  1. NOVOLOG MIX 70/30 [Suspect]
     Active Substance: INSULIN ASPART
     Indication: TYPE 2 DIABETES MELLITUS
     Dosage: 35 UNITS WITH MEALS THREE TIMES PER DAY
     Route: 058

REACTIONS (7)
  - Osteoarthritis [Unknown]
  - Diabetic retinopathy [Unknown]
  - Diabetic neuropathy [Unknown]
  - Visual impairment [Unknown]
  - Hypertension [Unknown]
  - Arthritis [Unknown]
  - Diabetes mellitus inadequate control [Unknown]
